FAERS Safety Report 4372110-9 (Version None)
Quarter: 2004Q2

REPORT INFORMATION
  Report Type: 
  Country: None (occurrence: None)
  Receive Date: 20040602
  Receipt Date: 20040519
  Transmission Date: 20050107
  Serious: Yes (Other)
  Sender: FDA-Public Use
  Company Number: GB-JNJFOC-20040504633

PATIENT
  Age: 20 Year
  Sex: Male

DRUGS (7)
  1. HALOPERIDOL [Suspect]
     Indication: SCHIZOPHRENIA
     Dosage: 15 MG, 2 IN 1 DAY, ORAL
     Route: 048
  2. CLOZARIL [Suspect]
     Indication: SCHIZOPHRENIA
     Dosage: 500 TO 450 MG/DAY
     Dates: start: 20031203
  3. PROCYCLIDINE HYDROCHLORIDE 2MG TAB [Concomitant]
  4. SERTRALINE HCL [Concomitant]
  5. DIAZEPAM [Concomitant]
  6. CO-PROXAMOL (APOREX) [Concomitant]
  7. DICLOFENAC (DICLOFENAC) [Concomitant]

REACTIONS (4)
  - DRUG INTERACTION [None]
  - PLATELET COUNT INCREASED [None]
  - TACHYCARDIA [None]
  - WHITE BLOOD CELL COUNT INCREASED [None]
